FAERS Safety Report 21237468 (Version 1)
Quarter: 2022Q3

REPORT INFORMATION
  Report Type: Spontaneous
  Country: US (occurrence: US)
  Receive Date: 20220822
  Receipt Date: 20220822
  Transmission Date: 20221027
  Serious: No
  Sender: FDA-Public Use
  Company Number: US-CIPLA LTD.-2022US03866

PATIENT
  Sex: Male

DRUGS (4)
  1. DICLOFENAC [Suspect]
     Active Substance: DICLOFENAC
     Indication: Musculoskeletal discomfort
     Dosage: UNK UNK, PRN
     Route: 061
     Dates: start: 20220607, end: 20220607
  2. GABAPENTIN [Concomitant]
     Active Substance: GABAPENTIN
     Indication: Restlessness
     Dosage: 325 MILLIGRAM, QD
     Route: 065
     Dates: start: 1998
  3. NORTRIPTYLINE [Concomitant]
     Active Substance: NORTRIPTYLINE
     Indication: Neck pain
     Dosage: 25 MILLIGRAM, PRN
     Route: 065
     Dates: start: 20220607
  4. NORTRIPTYLINE [Concomitant]
     Active Substance: NORTRIPTYLINE
     Indication: Arthralgia

REACTIONS (4)
  - Drug ineffective [Unknown]
  - Off label use [Unknown]
  - Product use in unapproved indication [Unknown]
  - Intentional product misuse [Unknown]

NARRATIVE: CASE EVENT DATE: 20220607
